FAERS Safety Report 5952236-6 (Version None)
Quarter: 2008Q4

REPORT INFORMATION
  Report Type: 
  Country: None (occurrence: None)
  Receive Date: 20081113
  Receipt Date: 20081106
  Transmission Date: 20090506
  Serious: Yes (Other)
  Sender: FDA-Public Use
  Company Number: US-JNJFOC-20080905780

PATIENT
  Sex: Female
  Weight: 58.97 kg

DRUGS (3)
  1. IBUPROFEN TABLETS [Suspect]
  2. IBUPROFEN TABLETS [Suspect]
     Indication: ENDOMETRIOSIS
  3. VITAMINS [Concomitant]

REACTIONS (1)
  - ENDOMETRIOSIS [None]
